FAERS Safety Report 9447911 (Version 1)
Quarter: 2013Q3

REPORT INFORMATION
  Report Type: Spontaneous
  Country: FR (occurrence: None)
  Receive Date: 20130806
  Receipt Date: 20130806
  Transmission Date: 20140515
  Serious: Yes (Hospitalization)
  Sender: FDA-Public Use
  Company Number: THQ2013A05793

PATIENT
  Age: 56 Year
  Sex: Male

DRUGS (13)
  1. IPERTEN [Suspect]
     Indication: OFF LABEL USE
     Dosage: 10 MG (1 D)
     Route: 048
     Dates: start: 20130307, end: 20130312
  2. OGASTORO [Suspect]
     Indication: PRODUCT USED FOR UNKNOWN INDICATION
     Dates: start: 20130306, end: 20130312
  3. TOCILIZUMAB [Suspect]
     Indication: RHEUMATOID ARTHRITIS
     Dosage: 8 MG/KG
     Route: 042
     Dates: start: 20121109, end: 20130227
  4. LEFLUNOMIDE [Suspect]
     Indication: RHEUMATOID ARTHRITIS
     Route: 048
     Dates: start: 20040329
  5. INEXIUM [Suspect]
     Indication: PRODUCT USED FOR UNKNOWN INDICATION
     Dosage: 20 MG (1 D)
     Route: 048
     Dates: start: 20130107, end: 20130306
  6. OROPERIDYS [Suspect]
     Indication: PRODUCT USED FOR UNKNOWN INDICATION
     Dosage: 10 MG (1 D)
     Route: 048
     Dates: start: 20130306, end: 20130312
  7. BIPRETERAX [Suspect]
     Indication: HYPERTENSION
     Dosage: 5 MG, 1 D)
     Route: 048
     Dates: start: 200210, end: 20130120
  8. PREDNISONE [Concomitant]
  9. NAPROXEN [Concomitant]
  10. CACIT D3 (COLECALCIFEROL, CALCIUM CARBONATE) [Concomitant]
  11. CYTOTEC (MISOPROSTOL) [Concomitant]
  12. ADALIMUMAB [Concomitant]
  13. KCL (POTASSIUM CHLORIDE) [Concomitant]

REACTIONS (4)
  - Hepatitis [None]
  - Off label use [None]
  - Hepatocellular injury [None]
  - Cholestasis [None]
